FAERS Safety Report 24987414 (Version 1)
Quarter: 2025Q1

REPORT INFORMATION
  Report Type: Other
  Country: US (occurrence: US)
  Receive Date: 20250219
  Receipt Date: 20250219
  Transmission Date: 20250409
  Serious: Yes (Other)
  Sender: CREEKWOOD PHARMACEUTICALS LLC
  Company Number: US-Creekwood Pharmaceuticals LLC-2171363

PATIENT
  Age: 58 Year
  Sex: Female

DRUGS (1)
  1. HYDROXYCHLOROQUINE SULFATE [Suspect]
     Active Substance: HYDROXYCHLOROQUINE SULFATE
     Indication: Systemic lupus erythematosus

REACTIONS (5)
  - Cystoid macular oedema [Recovering/Resolving]
  - Retinal pigment epithelium change [Recovering/Resolving]
  - Maculopathy [Recovering/Resolving]
  - Retinal toxicity [Recovering/Resolving]
  - Retinal degeneration [Recovering/Resolving]
